FAERS Safety Report 6620935-9 (Version None)
Quarter: 2010Q1

REPORT INFORMATION
  Report Type: 
  Country: None (occurrence: None)
  Receive Date: 20100309
  Receipt Date: 20100308
  Transmission Date: 20100710
  Serious: Yes (Hospitalization)
  Sender: FDA-Public Use
  Company Number: US-PERRIGO-10US007652

PATIENT
  Age: 68 Year
  Sex: Female
  Weight: 56.689 kg

DRUGS (2)
  1. SIMETHICONE 180 MG 657 [Suspect]
     Indication: DRUG USE FOR UNKNOWN INDICATION
     Dosage: 2 SOFTGELS
     Route: 048
     Dates: start: 20100303, end: 20100303
  2. PREMARIN [Concomitant]
     Indication: HORMONE REPLACEMENT THERAPY
     Dosage: UNK
     Route: 048

REACTIONS (2)
  - ABDOMINAL DISTENSION [None]
  - ABDOMINAL PAIN UPPER [None]
